FAERS Safety Report 12787724 (Version 1)
Quarter: 2016Q3

REPORT INFORMATION
  Report Type: Report from Study
  Country: US (occurrence: US)
  Receive Date: 20160928
  Receipt Date: 20160928
  Transmission Date: 20161109
  Serious: Yes (Hospitalization, Disabling)
  Sender: FDA-Public Use
  Company Number: PHHY2014US155449

PATIENT
  Age: 45 Year
  Sex: Female
  Weight: 74.8 kg

DRUGS (4)
  1. MODAFINIL. [Concomitant]
     Active Substance: MODAFINIL
     Indication: FATIGUE
     Dosage: 100 MG, UNK
     Route: 065
     Dates: start: 20130911
  2. GILENYA [Suspect]
     Active Substance: FINGOLIMOD HYDROCHLORIDE
     Indication: PROGRESSIVE RELAPSING MULTIPLE SCLEROSIS
     Dosage: 0.5 MG, QD
     Route: 048
     Dates: start: 20140624
  3. AMITRIPTYLINE [Concomitant]
     Active Substance: AMITRIPTYLINE
     Indication: DYSAESTHESIA
     Dosage: 25 MG, UNK
     Route: 065
     Dates: start: 20120131
  4. BACLOFEN. [Concomitant]
     Active Substance: BACLOFEN
     Indication: MUSCLE SPASTICITY
     Dosage: 10 MG, UNK
     Route: 065
     Dates: start: 2012

REACTIONS (10)
  - Hypoaesthesia [Not Recovered/Not Resolved]
  - Dysaesthesia [Unknown]
  - Facial paresis [Recovering/Resolving]
  - Multiple sclerosis relapse [Recovering/Resolving]
  - Muscular weakness [Unknown]
  - Alopecia [Unknown]
  - Asthenia [Unknown]
  - Concomitant disease aggravated [Unknown]
  - Hemiparesis [Recovering/Resolving]
  - Muscle spasticity [Unknown]

NARRATIVE: CASE EVENT DATE: 20140917
